FAERS Safety Report 17628886 (Version 1)
Quarter: 2020Q2

REPORT INFORMATION
  Report Type: Spontaneous
  Country: FR (occurrence: FR)
  Receive Date: 20200406
  Receipt Date: 20200406
  Transmission Date: 20200713
  Serious: Yes (Other)
  Sender: FDA-Public Use
  Company Number: FR-TEVA-2020-FR-1218434

PATIENT
  Age: 44 Year
  Sex: Male
  Weight: 58 kg

DRUGS (2)
  1. CLOZAPINE. [Suspect]
     Active Substance: CLOZAPINE
     Indication: PRODUCT ADMINISTRATION ERROR
     Dosage: 200 MG
     Route: 048
     Dates: start: 20200304, end: 20200304
  2. NOZINAN 25 MG, COMPRIM? PELLICUL? S?CABLE [Suspect]
     Active Substance: LEVOMEPROMAZINE MALEATE
     Indication: PRODUCT ADMINISTRATION ERROR
     Dosage: 25 MG
     Route: 048
     Dates: start: 20200304, end: 20200304

REACTIONS (4)
  - Hypothermia [Recovered/Resolved]
  - Somnolence [Recovered/Resolved]
  - Pyrexia [Recovered/Resolved]
  - Product administration error [Recovered/Resolved]

NARRATIVE: CASE EVENT DATE: 20200304
